FAERS Safety Report 15991419 (Version 9)
Quarter: 2020Q4

REPORT INFORMATION
  Report Type: Spontaneous
  Country: US (occurrence: US)
  Receive Date: 20190221
  Receipt Date: 20201109
  Transmission Date: 20210113
  Serious: Yes (Hospitalization, Other)
  Sender: FDA-Public Use
  Company Number: US-PFIZER INC-2019057917

PATIENT
  Age: 57 Year
  Sex: Female
  Weight: 72.56 kg

DRUGS (3)
  1. PREPARATION H SUPPOSITORY [Suspect]
     Active Substance: COCOA BUTTER\PHENYLEPHRINE HYDROCHLORIDE
     Indication: HAEMORRHOIDS
     Dosage: UNK (USED FOR 7 DAYS TOOK A TOTAL OF 9 SUPPOSITORIES)
     Dates: start: 201901, end: 20190128
  2. PREPARATION H MEDICATED WIPES [Concomitant]
     Active Substance: WITCH HAZEL
     Dosage: UNK
     Dates: start: 201901, end: 2019
  3. PREPARATION H CREAM MAX STRENGTH [Concomitant]
     Active Substance: GLYCERIN\PETROLATUM\PHENYLEPHRINE HYDROCHLORIDE\PRAMOXINE HYDROCHLORIDE
     Dosage: UNK
     Dates: start: 201901, end: 2019

REACTIONS (14)
  - Pain [Unknown]
  - Product physical issue [Not Recovered/Not Resolved]
  - Irritable bowel syndrome [Not Recovered/Not Resolved]
  - Uterine prolapse [Unknown]
  - Headache [Recovered/Resolved]
  - Anal fissure [Recovering/Resolving]
  - Haemorrhage [Not Recovered/Not Resolved]
  - Product colour issue [Not Recovered/Not Resolved]
  - Illness [Unknown]
  - Condition aggravated [Unknown]
  - Fungal skin infection [Not Recovered/Not Resolved]
  - Rectal haemorrhage [Unknown]
  - Burning sensation [Recovered/Resolved]
  - Dizziness [Unknown]

NARRATIVE: CASE EVENT DATE: 201901
